FAERS Safety Report 11394017 (Version 1)
Quarter: 2015Q3

REPORT INFORMATION
  Report Type: Spontaneous
  Country: US (occurrence: None)
  Receive Date: 20150817
  Receipt Date: 20150817
  Transmission Date: 20151125
  Serious: Yes (Other)
  Sender: FDA-Public Use
  Company Number: None

PATIENT
  Age: 64 Year
  Sex: Female

DRUGS (1)
  1. INLYTA [Suspect]
     Active Substance: AXITINIB
     Indication: RENAL CANCER
     Route: 048
     Dates: start: 20141202, end: 20150814

REACTIONS (4)
  - Nausea [None]
  - Abdominal pain [None]
  - Therapeutic response decreased [None]
  - Diarrhoea [None]

NARRATIVE: CASE EVENT DATE: 20150814
